FAERS Safety Report 5760654-4 (Version None)
Quarter: 2008Q2

REPORT INFORMATION
  Report Type: 
  Country: None (occurrence: None)
  Receive Date: 20080602
  Receipt Date: 20080523
  Transmission Date: 20081010
  Serious: Yes (Hospitalization)
  Sender: FDA-Public Use
  Company Number: AZAUS200800114

PATIENT
  Age: 77 Year
  Sex: Female
  Weight: 60.8 kg

DRUGS (5)
  1. VIDAZA [Suspect]
     Indication: MYELODYSPLASTIC SYNDROME
     Dosage: 75 MG/M2, INTRAVENOUS
     Route: 042
     Dates: start: 20080421, end: 20080422
  2. MULTIVITAMIN [Concomitant]
  3. FERROUS SULFATE TAB [Concomitant]
  4. ESOMEPRAZOLE (ESOMEPRAZOLE) [Concomitant]
  5. OXYCODONE/ACETAMINOPHEN (OXYCOCET) [Concomitant]

REACTIONS (3)
  - COLITIS ISCHAEMIC [None]
  - GENERAL PHYSICAL HEALTH DETERIORATION [None]
  - RECTAL HAEMORRHAGE [None]
